FAERS Safety Report 6709463-X (Version None)
Quarter: 2010Q2

REPORT INFORMATION
  Report Type: 
  Country: None (occurrence: None)
  Receive Date: 20100503
  Receipt Date: 20100503
  Transmission Date: 20101027
  Serious: Yes (Death)
  Sender: FDA-Public Use
  Company Number: None

PATIENT
  Sex: Female
  Weight: 58.9676 kg

DRUGS (1)
  1. ARIXTRA [Suspect]
     Indication: HIP SURGERY
     Dates: start: 20100306, end: 20100320

REACTIONS (2)
  - FALL [None]
  - HEAD INJURY [None]
